FAERS Safety Report 6021671-2 (Version None)
Quarter: 2008Q4

REPORT INFORMATION
  Report Type: 
  Country: None (occurrence: None)
  Receive Date: 20081229
  Receipt Date: 20081216
  Transmission Date: 20090506
  Serious: Yes (Death)
  Sender: FDA-Public Use
  Company Number: NL-SANOFI-SYNTHELABO-A01200816175

PATIENT
  Sex: Female

DRUGS (2)
  1. XELODA [Suspect]
     Indication: COLON CANCER
     Dosage: 3600 MG
     Route: 048
     Dates: start: 20070504, end: 20070516
  2. OXALIPLATIN [Suspect]
     Indication: COLON CANCER
     Dosage: 100 MG
     Route: 042
     Dates: start: 20070504, end: 20070504

REACTIONS (3)
  - DEATH [None]
  - MUCOSAL INFLAMMATION [None]
  - SEPSIS [None]
